FAERS Safety Report 19420289 (Version 3)
Quarter: 2021Q2

REPORT INFORMATION
  Report Type: Report from Study
  Country: US (occurrence: US)
  Receive Date: 20210615
  Receipt Date: 20210625
  Transmission Date: 20210717
  Serious: Yes (Hospitalization)
  Sender: FDA-Public Use
  Company Number: US-EMD SERONO-9239833

PATIENT
  Age: 63 Year
  Sex: Female

DRUGS (1)
  1. MAVENCLAD [Suspect]
     Active Substance: CLADRIBINE
     Indication: MULTIPLE SCLEROSIS
     Dosage: YEAR ONE CYCLE ONE THERAPY
     Route: 048
     Dates: start: 20210517, end: 20210521

REACTIONS (4)
  - Headache [Unknown]
  - Head discomfort [Unknown]
  - Drug intolerance [Unknown]
  - Pain [Unknown]

NARRATIVE: CASE EVENT DATE: 20210517
